FAERS Safety Report 17123128 (Version 1)
Quarter: 2019Q4

REPORT INFORMATION
  Report Type: Spontaneous
  Country: DE (occurrence: DE)
  Receive Date: 20191206
  Receipt Date: 20191206
  Transmission Date: 20200122
  Serious: No
  Sender: FDA-Public Use
  Company Number: DE-BEH-2019110190

PATIENT
  Age: 28 Year
  Sex: Female

DRUGS (2)
  1. RHOPHYLAC [Suspect]
     Active Substance: HUMAN RHO(D) IMMUNE GLOBULIN
     Indication: RHESUS ANTIGEN NEGATIVE
     Dosage: DAILY DOSE: 1 DF DOSAGE FORM EVERY DAYS
     Route: 030
     Dates: start: 2015
  2. RHOPHYLAC [Suspect]
     Active Substance: HUMAN RHO(D) IMMUNE GLOBULIN
     Indication: RHESUS ANTIGEN NEGATIVE
     Dosage: DAILY DOSE: 1 DF DOSAGE FORM EVERY DAYS
     Route: 030
     Dates: start: 2015

REACTIONS (4)
  - Wrong patient received product [Not Recovered/Not Resolved]
  - Pruritus [Not Recovered/Not Resolved]
  - Rash [Not Recovered/Not Resolved]
  - Transcription medication error [Not Recovered/Not Resolved]

NARRATIVE: CASE EVENT DATE: 20150313
